FAERS Safety Report 17424271 (Version 2)
Quarter: 2020Q2

REPORT INFORMATION
  Report Type: Report from Study
  Country: None (occurrence: US)
  Receive Date: 20200217
  Receipt Date: 20200505
  Transmission Date: 20200713
  Serious: Yes (Other)
  Sender: FDA-Public Use
  Company Number: US-ABBVIE-20K-163-3272447-00

PATIENT
  Age: 68 Year
  Sex: Female
  Weight: 88.53 kg

DRUGS (1)
  1. HUMIRA [Suspect]
     Active Substance: ADALIMUMAB
     Indication: CROHN^S DISEASE
     Dosage: HUMIRA CITRATE FREE
     Route: 058

REACTIONS (3)
  - Influenza [Recovered/Resolved]
  - Cyst [Recovered/Resolved]
  - Herpes ophthalmic [Recovered/Resolved]

NARRATIVE: CASE EVENT DATE: 201908
